FAERS Safety Report 23493512 (Version 1)
Quarter: 2024Q1

REPORT INFORMATION
  Report Type: Spontaneous
  Country: US (occurrence: None)
  Receive Date: 20240206
  Receipt Date: 20240206
  Transmission Date: 20240410
  Serious: Yes (Other)
  Sender: FDA-Public Use
  Company Number: None

PATIENT
  Age: 39 Year
  Sex: Female
  Weight: 89.5 kg

DRUGS (4)
  1. EXTRANEAL [Suspect]
     Active Substance: CALCIUM CHLORIDE\ICODEXTRIN\MAGNESIUM CHLORIDE\SODIUM CHLORIDE\SODIUM LACTATE
     Indication: End stage renal disease
     Dosage: FREQUENCY : DAILY;?
     Route: 033
     Dates: start: 20231205, end: 20231207
  2. AMIA Baxter Peritoneal Dialysis Machine [Concomitant]
  3. Baxter Transfer Set [Concomitant]
  4. HEPARIN [Concomitant]
     Active Substance: HEPARIN SODIUM

REACTIONS (6)
  - Dialysis [None]
  - Rash [None]
  - Rash [None]
  - Rash papular [None]
  - Palmar erythema [None]
  - Drug hypersensitivity [None]

NARRATIVE: CASE EVENT DATE: 20231206
